FAERS Safety Report 10093415 (Version 1)
Quarter: 2014Q2

REPORT INFORMATION
  Report Type: Spontaneous
  Country: US (occurrence: US)
  Receive Date: 20140421
  Receipt Date: 20140421
  Transmission Date: 20141212
  Serious: No
  Sender: FDA-Public Use
  Company Number: US-SA-2013SA134213

PATIENT
  Sex: Female

DRUGS (8)
  1. ALLEGRA 24 HOUR [Suspect]
     Indication: NASOPHARYNGITIS
     Route: 048
  2. ALLEGRA 24 HOUR [Suspect]
     Indication: RHINORRHOEA
     Route: 048
  3. ALLEGRA 24 HOUR [Suspect]
     Indication: SNEEZING
     Route: 048
  4. GABAPENTIN [Concomitant]
     Route: 065
  5. SOTALOL [Concomitant]
     Route: 065
  6. ASPIRIN [Concomitant]
     Route: 065
  7. DILTIAZEM [Concomitant]
     Route: 065
  8. LIPITOR [Concomitant]
     Route: 065

REACTIONS (2)
  - Somnolence [Not Recovered/Not Resolved]
  - Inappropriate schedule of drug administration [Unknown]
